FAERS Safety Report 6020607-8 (Version None)
Quarter: 2008Q4

REPORT INFORMATION
  Report Type: 
  Country: None (occurrence: None)
  Receive Date: 20081227
  Receipt Date: 20081217
  Transmission Date: 20090506
  Serious: Yes (Other)
  Sender: FDA-Public Use
  Company Number: DE-SANOFI-SYNTHELABO-A01200816314

PATIENT
  Sex: Male
  Weight: 68 kg

DRUGS (7)
  1. BISOPROLOL FUMARATE [Concomitant]
     Indication: ACUTE CORONARY SYNDROME
     Route: 048
  2. SIMVASTATIN [Concomitant]
     Indication: ACUTE CORONARY SYNDROME
     Route: 048
  3. OMEPRAZOLE [Concomitant]
     Indication: GASTRIC DISORDER
     Route: 048
  4. ISCOVER [Suspect]
     Indication: ACUTE CORONARY SYNDROME
     Route: 048
  5. ISCOVER [Suspect]
     Indication: STENT PLACEMENT
     Route: 048
  6. ASPIRIN [Suspect]
     Indication: ACUTE CORONARY SYNDROME
  7. ASPIRIN [Suspect]
     Indication: STENT PLACEMENT

REACTIONS (6)
  - ARTHROPATHY [None]
  - ASTHMA [None]
  - OEDEMA MUCOSAL [None]
  - RASH [None]
  - RESPIRATORY TRACT IRRITATION [None]
  - SINUSITIS [None]
